APPROVED DRUG PRODUCT: KLAYESTA
Active Ingredient: NYSTATIN
Strength: 100,000 UNITS/GM
Dosage Form/Route: POWDER;TOPICAL
Application: A210532 | Product #001 | TE Code: AT
Applicant: EPIC PHARMA LLC
Approved: Apr 30, 2018 | RLD: No | RS: No | Type: RX